FAERS Safety Report 6574684-6 (Version None)
Quarter: 2010Q1

REPORT INFORMATION
  Report Type: 
  Country: None (occurrence: None)
  Receive Date: 20100209
  Receipt Date: 20100203
  Transmission Date: 20100710
  Serious: Yes (Death)
  Sender: FDA-Public Use
  Company Number: PHHY2010EC06383

PATIENT
  Age: 92 Year
  Sex: Female

DRUGS (1)
  1. ACLASTA [Suspect]
     Indication: OSTEOPOROSIS POSTMENOPAUSAL
     Dosage: 1 STAT
     Dates: start: 20060101

REACTIONS (3)
  - INFLUENZA [None]
  - NASOPHARYNGITIS [None]
  - PNEUMONIA [None]
